FAERS Safety Report 7477794-4 (Version None)
Quarter: 2011Q2

REPORT INFORMATION
  Report Type: 
  Country: None (occurrence: None)
  Receive Date: 20110513
  Receipt Date: 20110502
  Transmission Date: 20111010
  Serious: Yes (Hospitalization)
  Sender: FDA-Public Use
  Company Number: US-ELI_LILLY_AND_COMPANY-US201103006166

PATIENT
  Sex: Male
  Weight: 54.875 kg

DRUGS (2)
  1. HUMALOG MIX 75/25 [Suspect]
     Indication: TYPE 2 DIABETES MELLITUS
     Dosage: 10 U, EACH MORNING
     Route: 065
  2. HUMALOG MIX 75/25 [Suspect]
     Dosage: 10 U, EACH MORNING
     Route: 065

REACTIONS (3)
  - INCORRECT STORAGE OF DRUG [None]
  - MEDICATION ERROR [None]
  - CARDIAC FAILURE CONGESTIVE [None]
